FAERS Safety Report 8231161-4 (Version None)
Quarter: 2012Q1

REPORT INFORMATION
  Report Type: 
  Country: None (occurrence: None)
  Receive Date: 20120323
  Receipt Date: 20120323
  Transmission Date: 20120608
  Serious: Yes (Death)
  Sender: FDA-Public Use
  Company Number: None

PATIENT
  Age: 79 Year
  Sex: Female
  Weight: 79 kg

DRUGS (11)
  1. LORAZEPAM [Concomitant]
     Route: 048
  2. AMLODIPINE [Concomitant]
     Route: 048
  3. SPRYCEL [Suspect]
     Indication: CHROMOSOME ANALYSIS ABNORMAL
     Dosage: 70 MG
     Route: 048
     Dates: start: 20120101, end: 20120229
  4. SPRYCEL [Suspect]
     Indication: CHRONIC MYELOID LEUKAEMIA
     Dosage: 70 MG
     Route: 048
     Dates: start: 20120101, end: 20120229
  5. FAMOTIDINE [Concomitant]
     Route: 048
  6. HYDROCHLORTHIAZIDE [Concomitant]
     Route: 048
  7. ACYCLOVIR [Concomitant]
     Route: 048
  8. METOPROLOL SUCCINATE [Concomitant]
     Route: 048
  9. PROMETHAZINE [Concomitant]
     Route: 048
  10. ADVAIR DISKUS 500/50 [Concomitant]
  11. OMEPRAZOLE [Concomitant]
     Route: 048

REACTIONS (3)
  - ENCEPHALOPATHY [None]
  - DRUG ERUPTION [None]
  - HEPATORENAL FAILURE [None]
